FAERS Safety Report 20744628 (Version 1)
Quarter: 2022Q2

REPORT INFORMATION
  Report Type: Spontaneous
  Country: None (occurrence: US)
  Receive Date: 20220425
  Receipt Date: 20220425
  Transmission Date: 20220721
  Serious: No
  Sender: FDA-Public Use
  Company Number: US-Mission Pharmacal Company-2128114

PATIENT
  Age: 65 Year
  Sex: Male

DRUGS (1)
  1. THIOLA EC [Suspect]
     Active Substance: TIOPRONIN
     Route: 048

REACTIONS (4)
  - Fatigue [Unknown]
  - Neck pain [Unknown]
  - Nuchal rigidity [Unknown]
  - Back pain [Unknown]
